FAERS Safety Report 17301406 (Version 1)
Quarter: 2020Q1

REPORT INFORMATION
  Report Type: Report from Study
  Country: FR (occurrence: FR)
  Receive Date: 20200122
  Receipt Date: 20200122
  Transmission Date: 20200409
  Serious: Yes (Death)
  Sender: FDA-Public Use
  Company Number: FR-MYLANLABS-2020M1002520

PATIENT
  Age: 57 Year
  Sex: Male

DRUGS (7)
  1. DEXAMETHASONE. [Suspect]
     Active Substance: DEXAMETHASONE
     Indication: PREMEDICATION
     Dosage: CHEMOTHERAPY ON DAYS 1, 8, 15 AND ON DAY 22 OF EACH CYCLE
     Route: 065
  2. ISATUXIMAB [Suspect]
     Active Substance: ISATUXIMAB
     Indication: PLASMA CELL MYELOMA
     Dosage: DAYS 1,8,15 ON DAY 22 OF FIRST 28-DAY CYCLE, ONDAY 1AND ONDAY 15 FROM THE SUBSEQUENT CYCLES
     Route: 042
  3. POMALIDOMIDE [Suspect]
     Active Substance: POMALIDOMIDE
     Indication: PLASMA CELL MYELOMA
     Dosage: ON DAY 1-21 OF EACH CYCLE
     Route: 048
  4. DIPHENHYDRAMINE. [Concomitant]
     Active Substance: DIPHENHYDRAMINE
     Indication: PREMEDICATION
     Dosage: 25-50MG OR EQUIVALENT
     Route: 065
  5. DEXAMETHASONE. [Suspect]
     Active Substance: DEXAMETHASONE
     Indication: PLASMA CELL MYELOMA
     Dosage: INITIALLY RECEIVED AS A PREMEDICATION; LATER, AS A PART OF CHEMOTHERAPY REGIMEN
     Route: 065
  6. RANITIDINE. [Concomitant]
     Active Substance: RANITIDINE
     Indication: PREMEDICATION
     Dosage: 50MG OR EQUIVALENT
     Route: 065
  7. PARACETAMOL [Concomitant]
     Active Substance: ACETAMINOPHEN
     Indication: PREMEDICATION
     Dosage: 650-1000MG
     Route: 065

REACTIONS (1)
  - Sepsis [Fatal]
